FAERS Safety Report 8969200 (Version 1)
Quarter: 2012Q4

REPORT INFORMATION
  Report Type: 
  Country: US (occurrence: US)
  Receive Date: 20121218
  Receipt Date: 20121218
  Transmission Date: 20130627
  Serious: No
  Sender: FDA-Public Use
  Company Number: US-BRISTOL-MYERS SQUIBB COMPANY-16309726

PATIENT
  Sex: Male

DRUGS (2)
  1. ABILIFY [Suspect]
     Dosage: since 5 weeks ago
  2. WELLBUTRIN SR [Concomitant]

REACTIONS (2)
  - Muscle twitching [Unknown]
  - Dyskinesia [Unknown]
